FAERS Safety Report 8581554 (Version 2)
Quarter: 2012Q4

REPORT INFORMATION
  Report Type: 
  Country: ES (occurrence: ES)
  Receive Date: 20120525
  Receipt Date: 20121011
  Transmission Date: 20130627
  Serious: Yes (Life-Threatening, Hospitalization)
  Sender: FDA-Public Use
  Company Number: ES-TEVA-338753ISR

PATIENT
  Age: 71 Year
  Sex: Male

DRUGS (6)
  1. AZILECT [Suspect]
     Indication: PARKINSON^S DISEASE
     Dosage: 1 Milligram Daily;
     Route: 048
     Dates: start: 2007, end: 20110820
  2. ESCITALOPRAM [Interacting]
     Indication: PARKINSON^S DISEASE
     Dosage: 10 Milligram Daily;
     Route: 048
     Dates: start: 200808, end: 20110820
  3. QUETIAPINE [Interacting]
     Indication: PARKINSON^S DISEASE
     Dosage: 50 Milligram Daily;
     Route: 048
     Dates: start: 201008, end: 20110820
  4. RIPSERDAL FLAS [Interacting]
     Indication: PARKINSON^S DISEASE
     Dosage: 50 Microgram Daily;
     Route: 048
     Dates: start: 20110816, end: 20110820
  5. SIMVASTATIN [Concomitant]
     Indication: HYPERLIPIDAEMIA
     Dosage: 20 Milligram Daily;
     Route: 048
     Dates: start: 201011, end: 20110820
  6. REQUIP-PROLIB [Concomitant]
     Indication: PARKINSON^S DISEASE
     Dosage: 8 Milligram Daily;
     Route: 048
     Dates: start: 20110820

REACTIONS (2)
  - Epistaxis [Recovered/Resolved]
  - Drug interaction [Not Recovered/Not Resolved]
